FAERS Safety Report 17595384 (Version 1)
Quarter: 2020Q1

REPORT INFORMATION
  Report Type: Spontaneous
  Country: US (occurrence: US)
  Receive Date: 20200329
  Receipt Date: 20200329
  Transmission Date: 20200409
  Serious: No
  Sender: FDA-Public Use
  Company Number: US-ASTRAZENECA-2020SE34689

PATIENT
  Age: 913 Month
  Sex: Female
  Weight: 72.6 kg

DRUGS (5)
  1. BENADRYL [Concomitant]
     Active Substance: DIPHENHYDRAMINE HYDROCHLORIDE
     Indication: RASH PRURITIC
     Route: 048
  2. FASENRA [Suspect]
     Active Substance: BENRALIZUMAB
     Indication: ASTHMA
     Route: 058
     Dates: start: 20200110
  3. CORTISONE [Concomitant]
     Active Substance: CORTISONE
     Indication: RASH PRURITIC
  4. BENADRYL CREAM [Concomitant]
     Active Substance: DIPHENHYDRAMINE\ZINC ACETATE
     Indication: RASH PRURITIC
  5. WALMART BRAND BENADRYL SPRAY [Concomitant]
     Indication: RASH PRURITIC

REACTIONS (2)
  - Rash pruritic [Not Recovered/Not Resolved]
  - Nasal congestion [Not Recovered/Not Resolved]

NARRATIVE: CASE EVENT DATE: 202002
